FAERS Safety Report 10227966 (Version 12)
Quarter: 2015Q1

REPORT INFORMATION
  Report Type: Report from Study
  Country: DE (occurrence: DE)
  Receive Date: 20140610
  Receipt Date: 20150319
  Transmission Date: 20150720
  Serious: Yes (Hospitalization)
  Sender: FDA-Public Use
  Company Number: DE-SA-2014SA074109

PATIENT
  Age: 42 Year
  Sex: Female
  Weight: 93 kg

DRUGS (3)
  1. CHARCOAL, ACTIVATED [Suspect]
     Active Substance: ACTIVATED CHARCOAL
     Indication: DRUG DETOXIFICATION
     Route: 048
     Dates: start: 20140808, end: 20140813
  2. COLESTYRAMINE [Suspect]
     Active Substance: CHOLESTYRAMINE
     Indication: DRUG DETOXIFICATION
     Route: 048
     Dates: start: 20140606, end: 20140620
  3. TERIFLUNOMIDE [Suspect]
     Active Substance: TERIFLUNOMIDE
     Indication: MULTIPLE SCLEROSIS RELAPSE
     Route: 048
     Dates: start: 20140108, end: 20140527

REACTIONS (4)
  - Lipase increased [Recovered/Resolved]
  - C-reactive protein increased [Recovered/Resolved with Sequelae]
  - Dehydration [Recovered/Resolved]
  - Colitis [Recovered/Resolved with Sequelae]

NARRATIVE: CASE EVENT DATE: 20140516
